FAERS Safety Report 8802197 (Version 1)
Quarter: 2012Q4

REPORT INFORMATION
  Report Type: 
  Country: US (occurrence: US)
  Receive Date: 20120921
  Receipt Date: 20120921
  Transmission Date: 20130627
  Serious: Yes (Death, Other)
  Sender: FDA-Public Use
  Company Number: PHHY2012US081187

PATIENT
  Age: 49 Year
  Sex: Female

DRUGS (6)
  1. CICLOSPORIN [Suspect]
  2. PREDNISONE [Suspect]
     Dosage: 2 mg/kg, per day
  3. KETAMINE [Suspect]
  4. ANTIBIOTICS [Suspect]
     Indication: SUPERINFECTION BACTERIAL
  5. IMMUNOGLOBULIN G HUMAN [Suspect]
     Dosage: 1 g/kg, per day
     Route: 042
  6. FENTANYL [Concomitant]

REACTIONS (4)
  - Sepsis [Fatal]
  - Multi-organ failure [Fatal]
  - Renal failure [Unknown]
  - Mental status changes [Unknown]
